FAERS Safety Report 4809750-6 (Version None)
Quarter: 2005Q4

REPORT INFORMATION
  Report Type: 
  Country: None (occurrence: None)
  Receive Date: 20051021
  Receipt Date: 20051021
  Transmission Date: 20060501
  Serious: No
  Sender: FDA-Public Use
  Company Number: None

PATIENT
  Age: 62 Year
  Sex: Female
  Weight: 88.4514 kg

DRUGS (5)
  1. GAMMAGARD LIQUID [Suspect]
     Indication: ANAPHYLACTIC REACTION
     Dosage: 30GM IV Q 4 WKS
     Route: 042
  2. HYZAAR [Concomitant]
  3. COUMADIN [Concomitant]
  4. PREDNISONE [Concomitant]
  5. ZYRTEC [Concomitant]

REACTIONS (5)
  - BLOOD PRESSURE INCREASED [None]
  - COUGH [None]
  - INFUSION RELATED REACTION [None]
  - RESPIRATORY TRACT CONGESTION [None]
  - WHEEZING [None]
